FAERS Safety Report 9795402 (Version 3)
Quarter: 2014Q4

REPORT INFORMATION
  Report Type: Spontaneous
  Country: US (occurrence: US)
  Receive Date: 20140103
  Receipt Date: 20141104
  Transmission Date: 20150529
  Serious: Yes (Life-Threatening, Hospitalization, Disabling)
  Sender: FDA-Public Use
  Company Number: US-BAYER-2013-159134

PATIENT
  Age: 43 Year
  Sex: Female
  Weight: 68 kg

DRUGS (15)
  1. MAGNESIUM [Concomitant]
     Active Substance: MAGNESIUM
  2. VICODIN [Concomitant]
     Active Substance: ACETAMINOPHEN\HYDROCODONE BITARTRATE
     Dosage: UNK
     Dates: start: 20100208
  3. FERROUS SULFATE [Concomitant]
     Active Substance: FERROUS SULFATE\FERROUS SULFATE, DRIED
  4. NORVASC [Concomitant]
     Active Substance: AMLODIPINE BESYLATE
  5. KEPPRA [Concomitant]
     Active Substance: LEVETIRACETAM
     Dosage: UNK
     Dates: start: 200301
  6. YASMIN [Suspect]
     Active Substance: DROSPIRENONE\ETHINYL ESTRADIOL
     Indication: MENORRHAGIA
     Dosage: UNK
     Route: 048
     Dates: start: 200108, end: 20030210
  7. YASMIN [Suspect]
     Active Substance: DROSPIRENONE\ETHINYL ESTRADIOL
     Indication: PREMENSTRUAL SYNDROME
  8. BACLOFEN. [Concomitant]
     Active Substance: BACLOFEN
     Dosage: UNK
     Dates: start: 200301
  9. PREDNISONE. [Concomitant]
     Active Substance: PREDNISONE
  10. ZOLOFT [Concomitant]
     Active Substance: SERTRALINE HYDROCHLORIDE
     Dosage: UNK
     Dates: start: 200301, end: 2004
  11. LYSINE [Concomitant]
     Active Substance: LYSINE
  12. DEPO-PROVERA [Concomitant]
     Active Substance: MEDROXYPROGESTERONE ACETATE
     Indication: HAEMORRHAGE
  13. AMPICILLIN [Concomitant]
     Active Substance: AMPICILLIN
  14. DILANTIN [Concomitant]
     Active Substance: PHENYTOIN
  15. IMMUNOGLOBULIN [IMMUNOGLOBULIN] [Concomitant]

REACTIONS (18)
  - General physical health deterioration [None]
  - Anxiety [None]
  - Nervous system disorder [None]
  - Aortic embolus [Recovered/Resolved]
  - Emotional distress [None]
  - Gait disturbance [None]
  - Pulmonary embolism [Recovered/Resolved]
  - Fall [None]
  - Hemiplegia [None]
  - Splenic thrombosis [None]
  - Activities of daily living impaired [None]
  - Cerebral haemorrhage [None]
  - Injury [None]
  - Facial paresis [None]
  - Cerebrovascular accident [None]
  - Pain [None]
  - Cerebral artery embolism [None]
  - Asthenia [None]

NARRATIVE: CASE EVENT DATE: 200302
